FAERS Safety Report 6096705-X (Version None)
Quarter: 2009Q1

REPORT INFORMATION
  Report Type: 
  Country: None (occurrence: None)
  Receive Date: 20090225
  Receipt Date: 20090223
  Transmission Date: 20090719
  Serious: Yes (Life-Threatening, Hospitalization, Other)
  Sender: FDA-Public Use
  Company Number: GXKR2009DE02149

PATIENT
  Sex: Male
  Weight: 65 kg

DRUGS (2)
  1. HC (HYDROCHLOROTHIAZIDE) TABLET [Suspect]
     Indication: HYPERTENSION
     Dosage: 25 MG DAILY, ORAL; 12.5 MG, QD, ORAL
     Route: 048
     Dates: start: 20080329, end: 20080429
  2. HC (HYDROCHLOROTHIAZIDE) TABLET [Suspect]
     Indication: HYPERTENSION
     Dosage: 25 MG DAILY, ORAL; 12.5 MG, QD, ORAL
     Route: 048
     Dates: start: 20080430, end: 20081120

REACTIONS (1)
  - HEPATITIS ACUTE [None]
